FAERS Safety Report 8588800-8 (Version None)
Quarter: 2012Q3

REPORT INFORMATION
  Report Type: 
  Country: None (occurrence: None)
  Receive Date: 20120803
  Receipt Date: 20120803
  Transmission Date: 20120928
  Serious: Yes (Hospitalization)
  Sender: FDA-Public Use
  Company Number: None

PATIENT
  Age: 61 Year
  Sex: Female
  Weight: 53.0709 kg

DRUGS (3)
  1. BOCEPREVIR 200 MG MERCK [Suspect]
     Indication: HEPATITIS C
     Dosage: 2400 MG TID PO
     Route: 048
     Dates: start: 20120203, end: 20120210
  2. PEGASYS [Suspect]
     Indication: HEPATITIS C
     Dosage: 180MCG SQ WEEKLY
     Route: 058
     Dates: start: 20120203, end: 20120210
  3. RIBAVIRIN [Suspect]
     Indication: HEPATITIS C
     Dosage: 1000MG PO DAILY
     Route: 048
     Dates: start: 20120203, end: 20120210

REACTIONS (5)
  - PANCYTOPENIA [None]
  - DEHYDRATION [None]
  - RENAL FAILURE ACUTE [None]
  - MEDICAL DIET [None]
  - MALNUTRITION [None]
